FAERS Safety Report 17198419 (Version 1)
Quarter: 2019Q4

REPORT INFORMATION
  Report Type: Spontaneous
  Country: IT (occurrence: IT)
  Receive Date: 20191225
  Receipt Date: 20191225
  Transmission Date: 20200122
  Serious: Yes (Other)
  Sender: FDA-Public Use
  Company Number: IT-TEVA-2019-IT-1157151

PATIENT
  Age: 64 Year
  Sex: Female
  Weight: 75 kg

DRUGS (1)
  1. MYOCET 50 MG POWDER, DISPERSION AND SOLVENT FOR CONCENTRATE FOR DISPER [Suspect]
     Active Substance: DOXORUBICIN
     Indication: LYMPHOMA
     Dosage: 50 MG/M2, CYCLICAL
     Route: 041

REACTIONS (4)
  - Sensation of foreign body [Recovered/Resolved]
  - Oxygen saturation decreased [Recovered/Resolved]
  - Dyspnoea [Recovered/Resolved]
  - Chest discomfort [Recovered/Resolved]

NARRATIVE: CASE EVENT DATE: 20191127
